FAERS Safety Report 16631308 (Version 1)
Quarter: 2019Q3

REPORT INFORMATION
  Report Type: Spontaneous
  Country: NL (occurrence: NL)
  Receive Date: 20190725
  Receipt Date: 20190725
  Transmission Date: 20191004
  Serious: Yes (Hospitalization)
  Sender: FDA-Public Use
  Company Number: NL-TEVA-2019-NL-1082995

PATIENT
  Age: 52 Year
  Sex: Female
  Weight: 75 kg

DRUGS (4)
  1. PANTOPRAZOL TABLET, 40 MG [Concomitant]
     Dosage: IF NECESSARY
     Route: 065
  2. LISINOPRIL TABLET, 30 MG [Concomitant]
     Dosage: 1DD1
  3. METFORMINE [Suspect]
     Active Substance: METFORMIN HYDROCHLORIDE
     Indication: TYPE 2 DIABETES MELLITUS
     Dosage: 500MG, 4DD
     Route: 065
     Dates: start: 20190601, end: 20190703
  4. METOPROLOLSUCCINAAT TABLET MGA (SELOKEEN), 50 MG [Concomitant]
     Dosage: 1DD1

REACTIONS (4)
  - Vomiting [Recovered/Resolved]
  - Nausea [Recovered/Resolved]
  - Hyperglycaemia [Recovered/Resolved]
  - Diarrhoea [Recovered/Resolved]

NARRATIVE: CASE EVENT DATE: 20190602
